FAERS Safety Report 14436737 (Version 1)
Quarter: 2018Q1

REPORT INFORMATION
  Report Type: Spontaneous
  Country: US (occurrence: US)
  Receive Date: 20180125
  Receipt Date: 20180125
  Transmission Date: 20180509
  Serious: No
  Sender: FDA-Public Use
  Company Number: US-BIOGEN-2018BI00512976

PATIENT
  Sex: Female

DRUGS (1)
  1. TYSABRI [Suspect]
     Active Substance: NATALIZUMAB
     Indication: MULTIPLE SCLEROSIS
     Route: 065
     Dates: start: 20171211

REACTIONS (5)
  - Nasal pruritus [Recovered/Resolved]
  - Back pain [Not Recovered/Not Resolved]
  - Throat irritation [Recovered/Resolved]
  - Arthralgia [Not Recovered/Not Resolved]
  - Ear pruritus [Recovered/Resolved]
